FAERS Safety Report 4354362-4 (Version None)
Quarter: 2004Q2

REPORT INFORMATION
  Report Type: 
  Country: None (occurrence: None)
  Receive Date: 20040503
  Receipt Date: 20040423
  Transmission Date: 20050107
  Serious: Yes (Hospitalization)
  Sender: FDA-Public Use
  Company Number: 2004AP02260

PATIENT
  Age: 75 Year
  Sex: Male

DRUGS (6)
  1. CASODEX [Suspect]
     Indication: PROSTATE CANCER
     Dosage: 80 MG DAILY PO
     Route: 048
     Dates: start: 20031029, end: 20040415
  2. LEUPROLIDE ACETATE [Suspect]
     Indication: PROSTATE CANCER
     Dosage: 3.75 MG SQ
     Dates: start: 20031126, end: 20040317
  3. PLETAL [Suspect]
     Indication: ATHEROSCLEROSIS OBLITERANS
     Dosage: 100 MG DAILY PO
     Route: 048
     Dates: start: 20030206, end: 20040301
  4. TERNELIN [Concomitant]
  5. JUVELA [Concomitant]
  6. CYANOCOBALAMIN [Concomitant]

REACTIONS (4)
  - BLEEDING TIME PROLONGED [None]
  - HAEMATURIA [None]
  - PLATELET COUNT DECREASED [None]
  - PROSTATE CANCER [None]
